FAERS Safety Report 5922074-9 (Version None)
Quarter: 2008Q4

REPORT INFORMATION
  Report Type: 
  Country: None (occurrence: None)
  Receive Date: 20081017
  Receipt Date: 20081009
  Transmission Date: 20090506
  Serious: Yes (Other)
  Sender: FDA-Public Use
  Company Number: B0540873A

PATIENT
  Age: 11 Year
  Sex: Male

DRUGS (2)
  1. MELPHALAN [Suspect]
     Indication: BONE MARROW TRANSPLANT
     Route: 042
  2. TOTAL BODY IRRADIATION [Suspect]
     Indication: BONE MARROW TRANSPLANT
     Route: 065

REACTIONS (2)
  - BODY TEMPERATURE INCREASED [None]
  - VENOOCCLUSIVE LIVER DISEASE [None]
